FAERS Safety Report 12918828 (Version 1)
Quarter: 2016Q4

REPORT INFORMATION
  Report Type: Spontaneous
  Country: US (occurrence: US)
  Receive Date: 20161107
  Receipt Date: 20161107
  Transmission Date: 20170207
  Serious: Yes (Other)
  Sender: FDA-Public Use
  Company Number: US-ASTRAZENECA-2016SF15503

PATIENT
  Sex: Female

DRUGS (1)
  1. SEROQUEL [Suspect]
     Active Substance: QUETIAPINE FUMARATE
     Indication: SLEEP DISORDER
     Route: 048

REACTIONS (7)
  - Muscle twitching [Unknown]
  - Product use issue [Unknown]
  - Neoplasm malignant [Unknown]
  - Incontinence [Unknown]
  - Feeling abnormal [Unknown]
  - Off label use [Unknown]
  - Restlessness [Unknown]
